FAERS Safety Report 4965090-6 (Version None)
Quarter: 2006Q1

REPORT INFORMATION
  Report Type: 
  Country: None (occurrence: None)
  Receive Date: 20060207
  Receipt Date: 20050624
  Transmission Date: 20060701
  Serious: Yes (Life-Threatening)
  Sender: FDA-Public Use
  Company Number: 240852

PATIENT
  Age: 57 Year
  Sex: Female
  Weight: 59 kg

DRUGS (8)
  1. NOVOLOG [Suspect]
     Indication: DIABETES MELLITUS INSULIN-DEPENDENT
     Dosage: 15 - 20 UNITS BASAL + SS, QD, SUBCUTAN. - PUMP
     Route: 058
     Dates: start: 20040601
  2. ARIMIDEX [Concomitant]
  3. SYNTHROID [Concomitant]
  4. ASPIRIN [Concomitant]
  5. WELLBUTRIN (IBUPROPION HYDROCHLORIDE) [Concomitant]
  6. EFFEXOR XR [Concomitant]
  7. CLONOPIN (CLONAZEPAM) [Concomitant]
  8. CALCIUM GLUCONATE [Concomitant]

REACTIONS (1)
  - HYPOGLYCAEMIC COMA [None]
